FAERS Safety Report 9700219 (Version 1)
Quarter: 2013Q4

REPORT INFORMATION
  Report Type: Spontaneous
  Country: FR (occurrence: None)
  Receive Date: 20131119
  Receipt Date: 20131119
  Transmission Date: 20140711
  Serious: Yes (Hospitalization)
  Sender: FDA-Public Use
  Company Number: 2013STPI000470

PATIENT
  Age: 29 Year
  Sex: Female

DRUGS (2)
  1. ADAGEN INJECTION (PEGADEMASE BOVINE INJECTION) INJECTION, 250UNITS/ML [Suspect]
     Indication: COMBINED IMMUNODEFICIENCY
     Dates: start: 20130409
  2. ADAGEN INJECTION (PEGADEMASE BOVINE INJECTION) INJECTION, 250UNITS/ML [Suspect]
     Indication: ADENOSINE DEAMINASE DECREASED
     Dates: start: 20130409

REACTIONS (3)
  - Deep vein thrombosis [None]
  - Erythema nodosum [None]
  - Pyrexia [None]
